FAERS Safety Report 6733614-4 (Version None)
Quarter: 2010Q2

REPORT INFORMATION
  Report Type: 
  Country: None (occurrence: None)
  Receive Date: 20100520
  Receipt Date: 20100510
  Transmission Date: 20101027
  Serious: Yes (Life-Threatening)
  Sender: FDA-Public Use
  Company Number: TR-GENZYME-CLOF-1000968

PATIENT
  Sex: Male
  Weight: 85 kg

DRUGS (4)
  1. EVOLTRA [Suspect]
     Indication: ACUTE MYELOID LEUKAEMIA
     Dosage: 40 MG/M2, QDX5
     Route: 042
     Dates: start: 20100203, end: 20100207
  2. EVOLTRA [Suspect]
     Dosage: 40 MG/M2, QDX5
     Route: 042
     Dates: start: 20100217, end: 20100221
  3. CYTARABINE [Suspect]
     Indication: OFF LABEL USE
     Dosage: 500 MG/M2, UNK
     Route: 065
     Dates: start: 20100203, end: 20100207
  4. ETOPOSIDE [Suspect]
     Indication: OFF LABEL USE
     Dosage: 100 MG/M2, UNK
     Route: 065
     Dates: start: 20100203, end: 20100207

REACTIONS (2)
  - CAPILLARY LEAK SYNDROME [None]
  - CARDIOTOXICITY [None]
